FAERS Safety Report 5242160-9 (Version None)
Quarter: 2007Q1

REPORT INFORMATION
  Report Type: 
  Country: None (occurrence: None)
  Receive Date: 20070213
  Receipt Date: 20070205
  Transmission Date: 20070707
  Serious: Yes (Other)
  Sender: FDA-Public Use
  Company Number: S07-USA-00558-01

PATIENT
  Age: 60 Year
  Sex: Female

DRUGS (1)
  1. TIAZAC [Suspect]
     Indication: HYPERTENSION
     Dosage: 180 MG QD PO
     Route: 048
     Dates: start: 20050101

REACTIONS (4)
  - BLOOD PRESSURE INCREASED [None]
  - DRUG INEFFECTIVE [None]
  - PHARMACEUTICAL PRODUCT COUNTERFEIT [None]
  - POOR QUALITY DRUG ADMINISTERED [None]
